FAERS Safety Report 8269450-X (Version None)
Quarter: 2012Q2

REPORT INFORMATION
  Report Type: 
  Country: None (occurrence: None)
  Receive Date: 20120409
  Receipt Date: 20120328
  Transmission Date: 20120825
  Serious: Yes (Hospitalization)
  Sender: FDA-Public Use
  Company Number: CO-ROCHE-1056367

PATIENT
  Sex: Male

DRUGS (3)
  1. COMBIVENT [Concomitant]
  2. ALBUTEROL [Concomitant]
  3. XOLAIR [Suspect]
     Indication: ASTHMA
     Dates: start: 20080101

REACTIONS (1)
  - LUNG DISORDER [None]
